FAERS Safety Report 4861178-9 (Version None)
Quarter: 2005Q4

REPORT INFORMATION
  Report Type: 
  Country: None (occurrence: None)
  Receive Date: 20051215
  Receipt Date: 20051209
  Transmission Date: 20060501
  Serious: Yes (Hospitalization)
  Sender: FDA-Public Use
  Company Number: FRWYE218309DEC05

PATIENT
  Age: 83 Year
  Sex: Female

DRUGS (13)
  1. EFFEXOR XR [Suspect]
     Indication: DEPRESSION
     Dosage: 37.5 MG 1X PER 1 DAY, 75 MG DAILY
     Route: 048
     Dates: start: 20041201, end: 20041201
  2. EFFEXOR XR [Suspect]
     Indication: DEPRESSION
     Dosage: 37.5 MG 1X PER 1 DAY, 75 MG DAILY
     Route: 048
     Dates: start: 20051110, end: 20051117
  3. SPIRONOLACTONE [Suspect]
     Route: 048
     Dates: end: 20041201
  4. ALDACTONE [Concomitant]
  5. RANITIDINE HYDROCHLORIDE [Concomitant]
  6. ATORVASTATIN CALCIUM [Concomitant]
  7. TEMESTA (LORAZEPAM) [Concomitant]
  8. LEVOTHYROXINE SODIUM [Concomitant]
  9. FLECAINIDE ACETATE [Concomitant]
  10. PREVISCAN (FLUINDIONE) [Concomitant]
  11. OMEPRAZOLE [Concomitant]
  12. NICARDIPINE HCL [Concomitant]
  13. LANSOPRAZOLE [Concomitant]

REACTIONS (4)
  - CONDITION AGGRAVATED [None]
  - HYPOCHLORAEMIA [None]
  - HYPONATRAEMIA [None]
  - HYPOTHYROIDISM [None]
